FAERS Safety Report 13502460 (Version 1)
Quarter: 2017Q2

REPORT INFORMATION
  Report Type: Spontaneous
  Country: US (occurrence: US)
  Receive Date: 20170502
  Receipt Date: 20170502
  Transmission Date: 20170830
  Serious: No
  Sender: FDA-Public Use
  Company Number: US-SUN PHARMACEUTICAL INDUSTRIES LTD-2017US-138293

PATIENT

DRUGS (2)
  1. BROMSITE 0.075% [Suspect]
     Active Substance: BROMFENAC SODIUM
     Indication: POSTOPERATIVE CARE
     Dosage: UNK
     Route: 031
     Dates: start: 20170302
  2. BROMSITE 0.075% [Suspect]
     Active Substance: BROMFENAC SODIUM
     Indication: INFLAMMATION

REACTIONS (2)
  - Ocular hyperaemia [Unknown]
  - Drug hypersensitivity [Unknown]

NARRATIVE: CASE EVENT DATE: 20170314
